FAERS Safety Report 17808058 (Version 1)
Quarter: 2020Q2

REPORT INFORMATION
  Report Type: Spontaneous
  Country: ES (occurrence: ES)
  Receive Date: 20200520
  Receipt Date: 20200520
  Transmission Date: 20200714
  Serious: Yes (Death, Hospitalization)
  Sender: FDA-Public Use
  Company Number: ES-PFIZER INC-2020198873

PATIENT
  Age: 72 Year
  Sex: Male

DRUGS (7)
  1. ROACTEMRA [Suspect]
     Active Substance: TOCILIZUMAB
     Indication: ACUTE RESPIRATORY DISTRESS SYNDROME
     Dosage: 600 MG, SINGLE
     Dates: start: 20200327, end: 20200327
  2. HYDROXYCHLOROQUINE [Suspect]
     Active Substance: HYDROXYCHLOROQUINE
     Indication: COVID-19 PNEUMONIA
     Dosage: 400 MG, DAILY
     Route: 048
     Dates: start: 20200326, end: 20200402
  3. METAMIZOLE [Suspect]
     Active Substance: METAMIZOLE
     Dosage: 2 G, 3X/DAY (2 G EVERY 8 HOURS)
     Route: 042
     Dates: start: 20200413, end: 20200416
  4. MEROPENEM. [Suspect]
     Active Substance: MEROPENEM
     Dosage: 1 G, 3X/DAY (EVERY 8 HOURS)
     Route: 042
     Dates: start: 20200404, end: 20200419
  5. ROACTEMRA [Suspect]
     Active Substance: TOCILIZUMAB
     Indication: COVID-19 PNEUMONIA
  6. PIPERACILLIN/TAZOBACTAM [Suspect]
     Active Substance: PIPERACILLIN SODIUM\TAZOBACTAM SODIUM
     Dosage: 1 DF, 3X/DAY (EVERY 8 HOURS)
     Route: 042
     Dates: start: 20200404, end: 20200407
  7. LINEZOLID. [Suspect]
     Active Substance: LINEZOLID
     Dosage: 600 MG, 2X/DAY (EVERY 12 HOURS)
     Route: 042
     Dates: start: 20200328, end: 20200416

REACTIONS (3)
  - Upper gastrointestinal haemorrhage [Recovering/Resolving]
  - Drug reaction with eosinophilia and systemic symptoms [Not Recovered/Not Resolved]
  - Hypofibrinogenaemia [Recovered/Resolved]

NARRATIVE: CASE EVENT DATE: 20200402
